FAERS Safety Report 9105698 (Version 3)
Quarter: 2013Q2

REPORT INFORMATION
  Report Type: Report from Study
  Country: DE (occurrence: DE)
  Receive Date: 20130220
  Receipt Date: 20130403
  Transmission Date: 20140414
  Serious: Yes (Hospitalization)
  Sender: FDA-Public Use
  Company Number: PHHO2013DE002721

PATIENT
  Age: 50 Year
  Sex: Male
  Weight: 119.1 kg

DRUGS (5)
  1. TACROLIMUS [Suspect]
     Indication: RENAL TRANSPLANT
     Dosage: 9 MG, BID
     Route: 048
     Dates: start: 20130118
  2. MYCOPHENOLIC ACID [Suspect]
     Indication: RENAL TRANSPLANT
     Dosage: 720 MG, BID
     Route: 048
     Dates: start: 20130118, end: 20130327
  3. MYCOPHENOLIC ACID [Suspect]
     Dosage: 720 MG/DAY
     Route: 048
     Dates: start: 20130328
  4. SIMULECT [Concomitant]
     Indication: RENAL TRANSPLANT
     Dosage: 20 MG, QD
     Route: 042
     Dates: start: 20130118
  5. DECORTIN [Concomitant]
     Indication: RENAL TRANSPLANT
     Dosage: 5 MG/D
     Route: 048
     Dates: start: 20130118

REACTIONS (5)
  - Skin ulcer [Not Recovered/Not Resolved]
  - Seroma [Recovering/Resolving]
  - Lung infection [Not Recovered/Not Resolved]
  - Blood creatinine increased [Not Recovered/Not Resolved]
  - Oedema peripheral [Recovering/Resolving]
